FAERS Safety Report 21991744 (Version 1)
Quarter: 2023Q1

REPORT INFORMATION
  Report Type: Other
  Country: AU (occurrence: AU)
  Receive Date: 20230214
  Receipt Date: 20230214
  Transmission Date: 20230418
  Serious: Yes (Other)
  Sender: FDA-Public Use
  Company Number: AU-MAYNE PHARMA-2023MYN000231

PATIENT

DRUGS (3)
  1. DOXYCYCLINE HYCLATE [Suspect]
     Active Substance: DOXYCYCLINE HYCLATE
     Indication: Mycoplasma genitalium infection
     Dosage: 100 MG, BID
     Route: 065
  2. AZITHROMYCIN [Suspect]
     Active Substance: AZITHROMYCIN
     Indication: Mycoplasma genitalium infection
     Dosage: 1 G, QD
     Route: 065
  3. AZITHROMYCIN [Suspect]
     Active Substance: AZITHROMYCIN
     Dosage: 500 UNK, QD
     Route: 065

REACTIONS (3)
  - Pathogen resistance [Unknown]
  - Product use in unapproved indication [Unknown]
  - Treatment failure [Unknown]
